FAERS Safety Report 22103532 (Version 1)
Quarter: 2023Q1

REPORT INFORMATION
  Report Type: Spontaneous
  Country: US (occurrence: None)
  Receive Date: 20230315
  Receipt Date: 20230315
  Transmission Date: 20230418
  Serious: No
  Sender: FDA-Public Use
  Company Number: None

PATIENT
  Age: 45 Year
  Sex: Female

DRUGS (15)
  1. AMBRISENTAN [Suspect]
     Active Substance: AMBRISENTAN
     Indication: Pulmonary hypertension
     Dosage: FREQUENCY : DAILY;?
     Route: 048
     Dates: start: 20190628
  2. TADALAFIL [Concomitant]
  3. TREPROSTINIL [Concomitant]
  4. PREDNISONE [Concomitant]
  5. DIGOXIN [Concomitant]
  6. FAMOTIDINE [Concomitant]
  7. ONDANSETRON [Concomitant]
  8. SPIRONOLACTONE [Concomitant]
  9. LEFLUNOMIDE [Concomitant]
  10. TYLENOL [Concomitant]
     Active Substance: ACETAMINOPHEN
  11. POTASSIUM CHLORIDE [Concomitant]
  12. FUROSEMIDE [Concomitant]
  13. LOPERAMIDE [Concomitant]
  14. VITAMIN D3 [Concomitant]
  15. TIMOLOL OPHT DROP [Concomitant]

REACTIONS (3)
  - Wound [None]
  - Hypersensitivity [None]
  - Vascular device infection [None]

NARRATIVE: CASE EVENT DATE: 20230220
